FAERS Safety Report 8040887-7 (Version None)
Quarter: 2012Q1

REPORT INFORMATION
  Report Type: 
  Country: None (occurrence: None)
  Receive Date: 20120112
  Receipt Date: 20120103
  Transmission Date: 20120608
  Serious: No
  Sender: FDA-Public Use
  Company Number: US-BIOGENIDEC-2011BI015476

PATIENT
  Sex: Female

DRUGS (1)
  1. TYSABRI [Suspect]
     Indication: MULTIPLE SCLEROSIS
     Route: 042
     Dates: start: 20100517

REACTIONS (17)
  - INSOMNIA [None]
  - APHASIA [None]
  - STRESS [None]
  - ANXIETY [None]
  - BALANCE DISORDER [None]
  - MEMORY IMPAIRMENT [None]
  - TOOTH EXTRACTION [None]
  - DENTAL CARE [None]
  - HYPOTHYROIDISM [None]
  - ORAL PAIN [None]
  - MENTAL DISORDER [None]
  - HYPERTENSION [None]
  - FALL [None]
  - HYPOAESTHESIA [None]
  - THYROID DISORDER [None]
  - GAIT DISTURBANCE [None]
  - ASTHENIA [None]
